FAERS Safety Report 4371688-9 (Version None)
Quarter: 2004Q2

REPORT INFORMATION
  Report Type: 
  Country: None (occurrence: None)
  Receive Date: 20040602
  Receipt Date: 20040525
  Transmission Date: 20050107
  Serious: Yes (Other)
  Sender: FDA-Public Use
  Company Number: 002#0#2004-00121

PATIENT
  Sex: Female

DRUGS (2)
  1. REGLAN [Suspect]
     Indication: NAUSEA
     Dosage: 10MG, 1 IN 1 D; ORAL
     Route: 048
  2. REGLAN [Suspect]
     Indication: VOMITING
     Dosage: 10MG, 1 IN 1 D; ORAL
     Route: 048

REACTIONS (1)
  - MEDICATION ERROR [None]
